FAERS Safety Report 4397989-6 (Version None)
Quarter: 2004Q3

REPORT INFORMATION
  Report Type: 
  Country: None (occurrence: None)
  Receive Date: 20040715
  Receipt Date: 20040709
  Transmission Date: 20050211
  Serious: Yes (Other)
  Sender: FDA-Public Use
  Company Number: US-BRISTOL-MYERS SQUIBB COMPANY-12636858

PATIENT
  Age: 48 Year
  Sex: Female

DRUGS (2)
  1. ESTRACE [Suspect]
     Indication: MENSTRUAL DISORDER
  2. CYCRIN [Suspect]
     Indication: MENSTRUAL DISORDER

REACTIONS (1)
  - BREAST CANCER [None]
